FAERS Safety Report 9106098 (Version 1)
Quarter: 2013Q1

REPORT INFORMATION
  Report Type: Spontaneous
  Country: FR (occurrence: FR)
  Receive Date: 20130220
  Receipt Date: 20130220
  Transmission Date: 20140127
  Serious: Yes (Hospitalization)
  Sender: FDA-Public Use
  Company Number: FR-ROCHE-1192335

PATIENT
  Age: 66 Year
  Sex: Male

DRUGS (3)
  1. AVASTIN [Suspect]
     Indication: COLON CANCER
     Dosage: LAST CYCLE ON 02/MAY/2012
     Route: 042
     Dates: start: 20120125
  2. CAMPTO [Suspect]
     Indication: COLON CANCER
     Dosage: LAST CYCLE ON 02/MAY/2012
     Route: 042
     Dates: start: 20120125
  3. FLUOROURACILE [Suspect]
     Indication: COLON CANCER
     Dosage: LAST CYCLE ON 02/MAY/2012
     Route: 042
     Dates: start: 20120125, end: 20120502

REACTIONS (2)
  - Renal failure acute [Recovering/Resolving]
  - Diarrhoea [Recovered/Resolved]
